FAERS Safety Report 4758010-0 (Version None)
Quarter: 2005Q3

REPORT INFORMATION
  Report Type: 
  Country: None (occurrence: None)
  Receive Date: 20050826
  Receipt Date: 20050622
  Transmission Date: 20060218
  Serious: No
  Sender: FDA-Public Use
  Company Number: WAES 0504USA02745

PATIENT
  Age: 31 Year
  Sex: Female
  Weight: 87.5442 kg

DRUGS (6)
  1. ZETIA [Suspect]
     Indication: HYPERCHOLESTEROLAEMIA
     Dosage: 10 MG/DAILY/PO
     Route: 048
     Dates: start: 20041001, end: 20050401
  2. ACIPHEX [Concomitant]
  3. CRESTOR [Concomitant]
  4. INNOPRAN XL [Concomitant]
  5. YASMIN [Concomitant]
  6. ZOLOFT [Concomitant]

REACTIONS (3)
  - LOW DENSITY LIPOPROTEIN INCREASED [None]
  - MUSCLE SPASMS [None]
  - MYALGIA [None]
